FAERS Safety Report 25845739 (Version 1)
Quarter: 2025Q3

REPORT INFORMATION
  Report Type: Report from Study
  Country: EU (occurrence: EU)
  Receive Date: 20250925
  Receipt Date: 20250925
  Transmission Date: 20251020
  Serious: Yes (Other)
  Sender: MYLAN
  Company Number: EU-MYLANLABS-2025M1080958

PATIENT
  Age: 57 Year

DRUGS (8)
  1. VENLAFAXINE [Suspect]
     Active Substance: VENLAFAXINE HYDROCHLORIDE
     Indication: Antidepressant therapy
     Dosage: 112.5 MILLIGRAM, QD
  2. VENLAFAXINE [Suspect]
     Active Substance: VENLAFAXINE HYDROCHLORIDE
     Dosage: 112.5 MILLIGRAM, QD
     Route: 065
  3. VENLAFAXINE [Suspect]
     Active Substance: VENLAFAXINE HYDROCHLORIDE
     Dosage: 112.5 MILLIGRAM, QD
     Route: 065
  4. VENLAFAXINE [Suspect]
     Active Substance: VENLAFAXINE HYDROCHLORIDE
     Dosage: 112.5 MILLIGRAM, QD
  5. BUPROPION [Suspect]
     Active Substance: BUPROPION
     Indication: Antidepressant therapy
     Dosage: 150 MILLIGRAM, QD
  6. BUPROPION [Suspect]
     Active Substance: BUPROPION
     Dosage: 150 MILLIGRAM, QD
     Route: 065
  7. BUPROPION [Suspect]
     Active Substance: BUPROPION
     Dosage: 150 MILLIGRAM, QD
     Route: 065
  8. BUPROPION [Suspect]
     Active Substance: BUPROPION
     Dosage: 150 MILLIGRAM, QD

REACTIONS (1)
  - Neurodegenerative disorder [Unknown]
